FAERS Safety Report 11009387 (Version 8)
Quarter: 2016Q2

REPORT INFORMATION
  Report Type: Spontaneous
  Country: CN (occurrence: CN)
  Receive Date: 20150410
  Receipt Date: 20160616
  Transmission Date: 20160815
  Serious: Yes (Hospitalization)
  Sender: FDA-Public Use
  Company Number: CN-009507513-1504CHN001710

PATIENT
  Age: 58 Year
  Sex: Male
  Weight: 62 kg

DRUGS (14)
  1. FUROSEMIDE. [Concomitant]
     Active Substance: FUROSEMIDE
     Indication: DIURETIC THERAPY
     Dosage: 20 MG, QD
     Route: 042
     Dates: start: 20150323, end: 20150325
  2. FUROSEMIDE. [Concomitant]
     Active Substance: FUROSEMIDE
     Dosage: 10 MG, QD
     Route: 042
     Dates: start: 20150327, end: 20150330
  3. EMEND [Suspect]
     Active Substance: APREPITANT
     Dosage: 80 MG, QD, DAY 2 AND 3
     Route: 048
     Dates: start: 20150324, end: 20150325
  4. CISPLATIN. [Concomitant]
     Active Substance: CISPLATIN
     Indication: CHEMOTHERAPY
     Dosage: 60 MG, D1,D2. CISPLATIN 60 MG D1, D2 ETOPOSIDE 200 MG D 1-3. CYCLE 1/UNK
     Route: 042
     Dates: start: 20150323, end: 20150324
  5. ETOPOSIDE. [Concomitant]
     Active Substance: ETOPOSIDE
     Indication: CHEMOTHERAPY
     Dosage: 200 MG, D1-3. CISPLATIN 60 MG D1, D2 ETOPOSIDE 200 MG D 1-3. CYCLE 1/UNK
     Route: 042
     Dates: start: 20150323, end: 20150325
  6. LANSOPRAZOLE. [Concomitant]
     Active Substance: LANSOPRAZOLE
     Indication: PROPHYLAXIS
     Dosage: 30 MG, BID
     Route: 042
     Dates: start: 20150323, end: 20150326
  7. DEXAMETHASONE SODIUM PHOSPHATE. [Concomitant]
     Active Substance: DEXAMETHASONE SODIUM PHOSPHATE
     Indication: PROPHYLAXIS OF NAUSEA AND VOMITING
     Dosage: 10 MG, QD
     Route: 042
     Dates: start: 20150323, end: 20150325
  8. POTASSIUM CHLORIDE. [Concomitant]
     Active Substance: POTASSIUM CHLORIDE
     Indication: MINERAL SUPPLEMENTATION
     Dosage: 10 ML/CC, QD
     Route: 042
     Dates: start: 20150323, end: 20150325
  9. POTASSIUM CHLORIDE. [Concomitant]
     Active Substance: POTASSIUM CHLORIDE
     Dosage: 5 ML/CC, QD
     Route: 042
     Dates: start: 20150323, end: 20150325
  10. THYMOPENTIN [Concomitant]
     Active Substance: THYMOPENTIN
     Indication: IMMUNE ENHANCEMENT THERAPY
     Dosage: 1 MG, QOD
     Route: 030
     Dates: start: 20150314
  11. JIAN PI YI SHEN KE LI [Concomitant]
     Indication: IMMUNE ENHANCEMENT THERAPY
     Dosage: 1 DF (BAG), TID
     Route: 048
     Dates: start: 20150323
  12. EMEND [Suspect]
     Active Substance: APREPITANT
     Indication: PROPHYLAXIS OF NAUSEA AND VOMITING
     Dosage: 125 MG, QD, DAY 1
     Route: 048
     Dates: start: 20150323, end: 20150323
  13. ONDANSETRON HYDROCHLORIDE. [Concomitant]
     Active Substance: ONDANSETRON HYDROCHLORIDE
     Indication: PROPHYLAXIS OF NAUSEA AND VOMITING
     Dosage: TOTAL DAILY DOSE: 16 MG; FREQUENCY: BID
     Route: 042
     Dates: start: 20150323, end: 20150325
  14. POTASSIUM CHLORIDE. [Concomitant]
     Active Substance: POTASSIUM CHLORIDE
     Indication: MINERAL SUPPLEMENTATION
     Dosage: TOTAL DAILY DOSE: 1 G; FREQUENCY: BID
     Route: 048
     Dates: start: 20150326, end: 20150331

REACTIONS (4)
  - Platelet count decreased [Recovering/Resolving]
  - Neutrophil count decreased [Recovered/Resolved]
  - White blood cell count decreased [Recovered/Resolved]
  - Anaemia [Recovering/Resolving]

NARRATIVE: CASE EVENT DATE: 20150330
